FAERS Safety Report 21182982 (Version 1)
Quarter: 2022Q3

REPORT INFORMATION
  Report Type: Spontaneous
  Country: US (occurrence: US)
  Receive Date: 20220808
  Receipt Date: 20220808
  Transmission Date: 20221026
  Serious: Yes (Other)
  Sender: FDA-Public Use
  Company Number: US-NOVARTISPH-NVSC2022US177214

PATIENT
  Age: 40 Year
  Sex: Male

DRUGS (12)
  1. EVEROLIMUS [Suspect]
     Active Substance: EVEROLIMUS
     Indication: Stem cell transplant
     Dosage: UNK
     Route: 065
  2. EVEROLIMUS [Suspect]
     Active Substance: EVEROLIMUS
     Indication: Lung transplant
  3. EVEROLIMUS [Suspect]
     Active Substance: EVEROLIMUS
     Indication: Immunosuppressant drug therapy
  4. CYCLOSPORINE [Suspect]
     Active Substance: CYCLOSPORINE
     Indication: Stem cell transplant
     Dosage: UNK
     Route: 065
  5. CYCLOSPORINE [Suspect]
     Active Substance: CYCLOSPORINE
     Indication: Lung transplant
  6. CYCLOSPORINE [Suspect]
     Active Substance: CYCLOSPORINE
     Indication: Immunosuppressant drug therapy
  7. POSACONAZOLE [Suspect]
     Active Substance: POSACONAZOLE
     Indication: Lung transplant
     Dosage: UNK
     Route: 065
  8. POSACONAZOLE [Suspect]
     Active Substance: POSACONAZOLE
     Indication: Stem cell transplant
  9. POSACONAZOLE [Suspect]
     Active Substance: POSACONAZOLE
     Indication: Immunosuppressant drug therapy
  10. DAPSONE [Suspect]
     Active Substance: DAPSONE
     Indication: Stem cell transplant
     Dosage: UNK
     Route: 065
  11. DAPSONE [Suspect]
     Active Substance: DAPSONE
     Indication: Lung transplant
  12. DAPSONE [Suspect]
     Active Substance: DAPSONE
     Indication: Immunosuppressant drug therapy

REACTIONS (2)
  - Ischaemic stroke [Unknown]
  - Product use in unapproved indication [Unknown]
